FAERS Safety Report 9709780 (Version 3)
Quarter: 2013Q4

REPORT INFORMATION
  Report Type: Spontaneous
  Country: DE (occurrence: DE)
  Receive Date: 20131126
  Receipt Date: 20131206
  Transmission Date: 20140711
  Serious: Yes (Hospitalization)
  Sender: FDA-Public Use
  Company Number: DE-BRISTOL-MYERS SQUIBB COMPANY-19345321

PATIENT
  Age: 52 Year
  Sex: Male

DRUGS (6)
  1. BYETTA [Suspect]
     Indication: TYPE 2 DIABETES MELLITUS
     Route: 058
     Dates: start: 2009, end: 2013
  2. ATACAND PLUS [Concomitant]
  3. KERLONE [Concomitant]
     Dosage: 20(UNITS NOS).
  4. TORSEMIDE [Concomitant]
     Dosage: 5(UNITS NOS).
  5. SORTIS [Concomitant]
     Dosage: 20(UNITS NOS)
  6. EUTHYROX [Concomitant]
     Dosage: 1DF:50(UNITS NOS).

REACTIONS (2)
  - Abdominal pain upper [Unknown]
  - Lipase increased [Unknown]
